FAERS Safety Report 9148360 (Version 1)
Quarter: 2013Q1

REPORT INFORMATION
  Report Type: Spontaneous
  Country: BR (occurrence: BR)
  Receive Date: 20130308
  Receipt Date: 20130308
  Transmission Date: 20140127
  Serious: Yes (Other)
  Sender: FDA-Public Use
  Company Number: BR-ACCORD-016622

PATIENT
  Age: 58 Year
  Sex: Male
  Weight: 68.5 kg

DRUGS (8)
  1. GLIBENCLAMIDE [Concomitant]
     Dosage: 5 MG / 2X DAY.
  2. DEXAMETHASONE [Concomitant]
     Route: 042
     Dates: start: 20130115, end: 20130115
  3. ONDASETRON [Concomitant]
     Route: 042
     Dates: start: 20130115, end: 20130115
  4. METOCHLOPRAMIDE [Concomitant]
     Route: 042
     Dates: start: 20130115, end: 20130115
  5. CISPLATIN [Suspect]
     Indication: TONSIL CANCER
     Route: 042
     Dates: start: 20121227
  6. PACLITAXEL [Suspect]
     Indication: TONSIL CANCER
     Route: 042
     Dates: start: 20121227
  7. RANITIDINE [Concomitant]
     Route: 042
     Dates: start: 20130115, end: 20130115
  8. DIPHENHYDRAMINE [Concomitant]
     Route: 042
     Dates: start: 20130115, end: 20130115

REACTIONS (6)
  - Erythema [Recovered/Resolved]
  - Paraesthesia [Recovered/Resolved]
  - Nausea [Recovered/Resolved]
  - Vomiting [Recovered/Resolved]
  - Myalgia [Recovered/Resolved]
  - Off label use [Unknown]
